FAERS Safety Report 21446890 (Version 3)
Quarter: 2022Q4

REPORT INFORMATION
  Report Type: Spontaneous
  Country: US (occurrence: US)
  Receive Date: 20221012
  Receipt Date: 20221104
  Transmission Date: 20230112
  Serious: Yes (Other)
  Sender: FDA-Public Use
  Company Number: US-PFIZER INC-PV202200080934

PATIENT
  Age: 49 Year
  Sex: Female

DRUGS (1)
  1. IBRANCE [Suspect]
     Active Substance: PALBOCICLIB
     Dosage: 125 MG

REACTIONS (8)
  - Bipolar disorder [Unknown]
  - Mood altered [Unknown]
  - Mood swings [Unknown]
  - Fatigue [Not Recovered/Not Resolved]
  - Dizziness [Recovered/Resolved]
  - Abnormal dreams [Unknown]
  - Gastrointestinal disorder [Unknown]
  - Insomnia [Unknown]
